FAERS Safety Report 5274108-5 (Version None)
Quarter: 2007Q1

REPORT INFORMATION
  Report Type: 
  Country: None (occurrence: None)
  Receive Date: 20070323
  Receipt Date: 20070119
  Transmission Date: 20070707
  Serious: Yes (Other)
  Sender: FDA-Public Use
  Company Number: US-ROCHE-457737

PATIENT
  Age: 32 Year
  Sex: Female

DRUGS (7)
  1. PEGASYS [Suspect]
     Dosage: STRENGTH AND FORMULATION = 180 MCG/0.5 CC ON AN UNSPECIFIED DATE, THE PATIENT'S DOSE WAS REDUCED TO+
     Route: 058
     Dates: start: 20060715
  2. PEGASYS [Suspect]
     Dosage: ON AN UNSPECIFIED DATE, THE PATIENT'S DOSE WAS REDUCED TO HALF ORIGINAL DOSAGE OF 180 MCG.
     Route: 058
  3. COPEGUS [Suspect]
     Route: 048
     Dates: start: 20060715
  4. COPEGUS [Suspect]
     Dosage: ON AN UNSPECIFIED DATE, THE PATIENT'S DOSE WAS REDUCED FROM 1000MG TO 800MG.
     Route: 048
  5. LITHIUM CARBONATE [Concomitant]
     Indication: BIPOLAR DISORDER
     Route: 048
  6. PROZAC [Concomitant]
     Indication: BIPOLAR DISORDER
     Route: 048
  7. KLONOPIN [Concomitant]
     Indication: BIPOLAR DISORDER
     Dosage: HS.
     Route: 048
     Dates: start: 20060730

REACTIONS (11)
  - AMNESIA [None]
  - BIPOLAR DISORDER [None]
  - DEPRESSION [None]
  - DISSOCIATION [None]
  - DRUG WITHDRAWAL SYNDROME [None]
  - FATIGUE [None]
  - HEPATIC PAIN [None]
  - MALAISE [None]
  - MIGRAINE [None]
  - NAUSEA [None]
  - SUICIDAL IDEATION [None]
